FAERS Safety Report 25367056 (Version 3)
Quarter: 2025Q3

REPORT INFORMATION
  Report Type: Spontaneous
  Country: US (occurrence: US)
  Receive Date: 20250528
  Receipt Date: 20250811
  Transmission Date: 20251021
  Serious: No
  Sender: BIOGEN
  Company Number: US-BIOGEN-2025BI01312354

PATIENT
  Sex: Female

DRUGS (16)
  1. VUMERITY [Suspect]
     Active Substance: DIROXIMEL FUMARATE
     Indication: Multiple sclerosis
     Route: 050
     Dates: start: 20210427
  2. APPLE CIDER [Concomitant]
     Route: 050
  3. CETIRIZINE HYDROCHLORIDE [Concomitant]
     Active Substance: CETIRIZINE HYDROCHLORIDE
     Route: 050
  4. COENZYME Q10 [Concomitant]
     Active Substance: DIETARY SUPPLEMENT\UBIDECARENONE
     Route: 050
  5. ELIQUIS [Concomitant]
     Active Substance: APIXABAN
     Route: 050
  6. JANUVIA [Concomitant]
     Active Substance: SITAGLIPTIN PHOSPHATE
     Route: 050
  7. LEVETIRACETAM [Concomitant]
     Active Substance: LEVETIRACETAM
     Route: 050
  8. LEVOTHYROXINE [Concomitant]
     Active Substance: LEVOTHYROXINE
     Route: 050
  9. OMEPRAZOLE [Concomitant]
     Active Substance: OMEPRAZOLE
     Route: 050
  10. SIMVASTATIN [Concomitant]
     Active Substance: SIMVASTATIN
     Route: 050
  11. TYLENOL [Concomitant]
     Active Substance: ACETAMINOPHEN
     Route: 050
  12. VITAMIN B12 [Concomitant]
     Active Substance: CYANOCOBALAMIN
     Route: 050
  13. VITAMIN B6 [Concomitant]
     Active Substance: PYRIDOXINE HYDROCHLORIDE
     Route: 050
  14. VITAMIN C [Concomitant]
     Active Substance: ASCORBIC ACID
     Route: 050
  15. VITAMIN D [Concomitant]
     Active Substance: VITAMIN D NOS
     Route: 050
  16. VITAMIN E [Concomitant]
     Active Substance: .ALPHA.-TOCOPHEROL
     Route: 050

REACTIONS (2)
  - Product dose omission issue [Not Recovered/Not Resolved]
  - Malaise [Unknown]
